FAERS Safety Report 9294650 (Version 2)
Quarter: 2013Q2

REPORT INFORMATION
  Report Type: Spontaneous
  Country: US (occurrence: US)
  Receive Date: 20130517
  Receipt Date: 20130620
  Transmission Date: 20140414
  Serious: Yes (Other)
  Sender: FDA-Public Use
  Company Number: US-SANOFI-AVENTIS-2013SA049185

PATIENT
  Age: 69 Year
  Sex: Female
  Weight: 99.79 kg

DRUGS (2)
  1. LANTUS SOLOSTAR [Suspect]
     Indication: TYPE 2 DIABETES MELLITUS
     Dosage: THERAPY START DATE - 7 YEARS?60 UNITS AT NIGHT 10:00 PM DOSE:60 UNIT(S)
     Route: 048
     Dates: end: 20130503
  2. SOLOSTAR [Suspect]
     Indication: TYPE 2 DIABETES MELLITUS
     Dates: end: 20130503

REACTIONS (5)
  - Fall [Unknown]
  - Lower limb fracture [Not Recovered/Not Resolved]
  - Thrombosis [Not Recovered/Not Resolved]
  - Hearing impaired [Not Recovered/Not Resolved]
  - Injection site haemorrhage [Recovered/Resolved]
